FAERS Safety Report 21192381 (Version 3)
Quarter: 2022Q4

REPORT INFORMATION
  Report Type: Spontaneous
  Country: JP (occurrence: JP)
  Receive Date: 20220809
  Receipt Date: 20221025
  Transmission Date: 20230113
  Serious: Yes (Death, Other)
  Sender: FDA-Public Use
  Company Number: JP-GILEAD-2022-0590695

PATIENT
  Age: 93 Year
  Sex: Male
  Weight: 35 kg

DRUGS (8)
  1. VEKLURY [Suspect]
     Active Substance: REMDESIVIR
     Indication: COVID-19
     Dosage: 200 MG, QD
     Route: 041
     Dates: start: 20220712, end: 20220712
  2. VEKLURY [Suspect]
     Active Substance: REMDESIVIR
     Dosage: 100 MG, QD
     Route: 041
     Dates: start: 20220713, end: 20220716
  3. VEKLURY [Suspect]
     Active Substance: REMDESIVIR
     Dosage: 200 MG
     Route: 041
     Dates: start: 20220722, end: 20220722
  4. DECADRON (DEXAMETHASONE SODIUM PHOSPHATE) [Concomitant]
     Active Substance: DEXAMETHASONE SODIUM PHOSPHATE
     Indication: COVID-19
     Dosage: 6 MG, QD
     Route: 041
     Dates: start: 20220711, end: 20220720
  5. SOTROVIMAB [Concomitant]
     Active Substance: SOTROVIMAB
     Indication: Antipyresis
     Dosage: UNK
     Dates: start: 20220705
  6. NOVOLIN R [Concomitant]
     Active Substance: INSULIN HUMAN
  7. INSULIN GLARGINE [Concomitant]
     Active Substance: INSULIN GLARGINE
  8. DIGITALIS SPP. [Concomitant]
     Dosage: UNK
     Route: 041
     Dates: start: 20220716

REACTIONS (3)
  - Acute kidney injury [Fatal]
  - Cardiac failure acute [Unknown]
  - SARS-CoV-2 test positive [Unknown]

NARRATIVE: CASE EVENT DATE: 20220701
